FAERS Safety Report 4815816-7 (Version None)
Quarter: 2005Q4

REPORT INFORMATION
  Report Type: 
  Country: None (occurrence: None)
  Receive Date: 20051031
  Receipt Date: 20050928
  Transmission Date: 20060501
  Serious: Yes (Disabling)
  Sender: FDA-Public Use
  Company Number: ES-MERCK-0509ESP00043

PATIENT
  Sex: Female

DRUGS (1)
  1. VIOXX [Suspect]
     Route: 065

REACTIONS (1)
  - ISCHAEMIC CARDIOMYOPATHY [None]
